FAERS Safety Report 11269043 (Version 1)
Quarter: 2015Q3

REPORT INFORMATION
  Report Type: Spontaneous
  Country: DE (occurrence: DE)
  Receive Date: 20150714
  Receipt Date: 20150714
  Transmission Date: 20151125
  Serious: Yes (Other)
  Sender: FDA-Public Use
  Company Number: DE-ACCORD-032168

PATIENT
  Age: 57 Year
  Sex: Male
  Weight: 91 kg

DRUGS (6)
  1. ETOPOSIDE. [Suspect]
     Active Substance: ETOPOSIDE
     Indication: STEM CELL TRANSPLANT
     Route: 042
     Dates: start: 20141106
  2. ACICLOVIR [Concomitant]
     Active Substance: ACYCLOVIR
     Dosage: 3 X 500 MG
     Route: 042
  3. URSOFALK [Concomitant]
     Active Substance: URSODIOL
     Dosage: 2 X 500 MG
     Route: 048
  4. TAMSULOSIN/TAMSULOSIN HYDROCHLORIDE [Concomitant]
     Route: 048
  5. TAVOR [Concomitant]
     Active Substance: LORAZEPAM
     Route: 048
  6. ZOPICLONE [Concomitant]
     Active Substance: ZOPICLONE
     Route: 048

REACTIONS (4)
  - Acute kidney injury [Unknown]
  - Off label use [Unknown]
  - Chills [Unknown]
  - Hypersensitivity [Unknown]

NARRATIVE: CASE EVENT DATE: 20141106
